FAERS Safety Report 7749637-2 (Version None)
Quarter: 2011Q3

REPORT INFORMATION
  Report Type: 
  Country: None (occurrence: None)
  Receive Date: 20110914
  Receipt Date: 20110906
  Transmission Date: 20111222
  Serious: Yes (Other)
  Sender: FDA-Public Use
  Company Number: JP-AMGEN-JPNSP2011029043

PATIENT
  Age: 62 Year
  Sex: Female
  Weight: 55 kg

DRUGS (8)
  1. PREDNISOLONE [Concomitant]
     Dosage: 5 MG, 1X/DAY
     Route: 048
     Dates: start: 19950314
  2. ENBREL [Suspect]
     Indication: RHEUMATOID ARTHRITIS
     Dosage: 25 MG, 2X/WEEK
     Route: 058
     Dates: start: 20040101
  3. CLARITIN                           /00917501/ [Concomitant]
     Dosage: 10 MG, 1X/DAY
     Route: 048
  4. RISEDRONATE SODIUM [Concomitant]
     Dosage: 17.5 MG, WEEKLY
     Dates: start: 20020101
  5. OMEPRAZOLE [Concomitant]
     Dosage: 10 MG, 1X/DAY
     Route: 048
     Dates: start: 20010101
  6. RHEUMATREX [Concomitant]
     Dosage: 6 MG, WEEKLY
     Dates: start: 19990101
  7. LIPITOR [Concomitant]
     Dosage: 5 MG, 1X/DAY
     Route: 048
     Dates: start: 20020101
  8. FOLIC ACID [Concomitant]
     Dosage: 5 MG, 1X/DAY
     Dates: start: 19990101

REACTIONS (1)
  - BILIARY CIRRHOSIS PRIMARY [None]
